FAERS Safety Report 14919665 (Version 3)
Quarter: 2019Q4

REPORT INFORMATION
  Report Type: Spontaneous
  Country: US (occurrence: US)
  Receive Date: 20180521
  Receipt Date: 20191021
  Transmission Date: 20200122
  Serious: Yes (Other)
  Sender: FDA-Public Use
  Company Number: US-PFIZER INC-2018202729

PATIENT
  Age: 62 Year
  Sex: Male

DRUGS (17)
  1. VIAGRA [Suspect]
     Active Substance: SILDENAFIL CITRATE
     Dosage: 100 MG, AS NEEDED (1 HR BEFORE SEXUAL ACTIVITY)
     Route: 048
     Dates: start: 20100110, end: 20120307
  2. VIAGRA [Suspect]
     Active Substance: SILDENAFIL CITRATE
     Dosage: 100 MG, AS NEEDED (1 HR BEFORE SEXUAL ACTIVITY)
     Route: 048
     Dates: start: 20130814, end: 20140210
  3. CIALIS [Suspect]
     Active Substance: TADALAFIL
     Dosage: 5 MG, AS NEEDED (1 HR BEFORE SEXUAL ACTIVITY)
     Route: 048
     Dates: start: 20081120, end: 20090927
  4. VIAGRA [Suspect]
     Active Substance: SILDENAFIL CITRATE
     Dosage: 100 MG, AS NEEDED (1 HR BEFORE SEXUAL ACTIVITY)
     Route: 048
     Dates: start: 20061114, end: 20080612
  5. BUSPIRONE [Concomitant]
     Active Substance: BUSPIRONE HYDROCHLORIDE
     Indication: MENTAL DISORDER
     Dosage: UNK
     Dates: start: 201306
  6. VIAGRA [Suspect]
     Active Substance: SILDENAFIL CITRATE
     Dosage: 100 MG, AS NEEDED (1 HR BEFORE SEXUAL ACTIVITY)
     Route: 048
     Dates: start: 20051105, end: 20060812
  7. VIAGRA [Suspect]
     Active Substance: SILDENAFIL CITRATE
     Indication: ERECTILE DYSFUNCTION
     Dosage: UNK
     Route: 048
     Dates: start: 200907, end: 201512
  8. VIAGRA [Suspect]
     Active Substance: SILDENAFIL CITRATE
     Dosage: 100 MG, AS NEEDED (1 HR BEFORE SEXUAL ACTIVITY)
     Route: 048
     Dates: start: 20150218, end: 20151001
  9. CIALIS [Suspect]
     Active Substance: TADALAFIL
     Dosage: 5 MG, AS NEEDED (1 HR BEFORE SEXUAL ACTIVITY)
     Route: 048
     Dates: start: 20120812, end: 20130328
  10. CIALIS [Suspect]
     Active Substance: TADALAFIL
     Dosage: 5 MG, AS NEEDED (1 HR BEFORE SEXUAL ACTIVITY)
     Route: 048
     Dates: start: 20140302, end: 20141207
  11. HYDROCHLOROTHIAZIDE AND LISINOPRIL [Concomitant]
     Active Substance: HYDROCHLOROTHIAZIDE\LISINOPRIL
     Indication: BLOOD PRESSURE ABNORMAL
     Dosage: UNK
     Dates: start: 200507
  12. CIALIS [Suspect]
     Active Substance: TADALAFIL
     Indication: ERECTILE DYSFUNCTION
     Dosage: UNK
     Route: 048
     Dates: start: 201203, end: 201601
  13. VIAGRA [Suspect]
     Active Substance: SILDENAFIL CITRATE
     Dosage: 100 MG, AS NEEDED (1 HR BEFORE SEXUAL ACTIVITY)
     Route: 048
     Dates: start: 19990420, end: 20040808
  14. TAMSULOSIN HCL [Concomitant]
     Active Substance: TAMSULOSIN HYDROCHLORIDE
     Indication: BENIGN PROSTATIC HYPERPLASIA
     Dosage: UNK
     Dates: start: 200912
  15. QUETIAPINE FUMARATE. [Concomitant]
     Active Substance: QUETIAPINE FUMARATE
     Indication: MENTAL DISORDER
     Dosage: UNK
     Dates: start: 201306
  16. LAMOTRIGINE. [Concomitant]
     Active Substance: LAMOTRIGINE
     Indication: MENTAL DISORDER
     Dosage: UNK
     Dates: start: 201306
  17. GABAPENTIN. [Concomitant]
     Active Substance: GABAPENTIN
     Indication: MENTAL DISORDER
     Dosage: UNK
     Dates: start: 201306

REACTIONS (2)
  - Malignant melanoma [Unknown]
  - Gastrointestinal melanoma [Unknown]

NARRATIVE: CASE EVENT DATE: 20150226
